FAERS Safety Report 9993841 (Version 2)
Quarter: 2014Q1

REPORT INFORMATION
  Report Type: Spontaneous
  Country: US (occurrence: US)
  Receive Date: 20140310
  Receipt Date: 20140310
  Transmission Date: 20141002
  Serious: No
  Sender: FDA-Public Use
  Company Number: US-AMGEN-USASP2013036703

PATIENT
  Age: 69 Year
  Sex: Female

DRUGS (1)
  1. SENSIPAR [Suspect]
     Indication: PARATHYROID DISORDER
     Dosage: 30 MG, QD
     Dates: start: 201301

REACTIONS (4)
  - Increased viscosity of bronchial secretion [Not Recovered/Not Resolved]
  - Tinnitus [Not Recovered/Not Resolved]
  - Saliva altered [Not Recovered/Not Resolved]
  - Somnolence [Unknown]
